FAERS Safety Report 20258615 (Version 2)
Quarter: 2022Q1

REPORT INFORMATION
  Report Type: Report from Study
  Country: US (occurrence: US)
  Receive Date: 20211230
  Receipt Date: 20220120
  Transmission Date: 20220423
  Serious: Yes (Hospitalization)
  Sender: FDA-Public Use
  Company Number: US-KARYOPHARM-2021KPT001636

PATIENT
  Age: 45 Year
  Sex: Female

DRUGS (23)
  1. SELINEXOR [Suspect]
     Active Substance: SELINEXOR
     Indication: Triple negative breast cancer
     Dosage: 80 MG, WEEKLY ON DAY 1, 8 AND 15 IN A 21 DAY CYCLE
     Route: 048
  2. ERIBULIN [Suspect]
     Active Substance: ERIBULIN
     Indication: Triple negative breast cancer
     Dosage: 1.6 MG ON DAY 1 AND 8 IN 21 DAY CYCLE
     Route: 042
  3. CALCIUM CITRATE + D3 [Concomitant]
     Indication: Bone lesion
     Dosage: 30 ML (1000 MG/10 MCG), QD
     Route: 048
     Dates: start: 202101
  4. XGEVA [Concomitant]
     Active Substance: DENOSUMAB
     Indication: Bone lesion
     Dosage: 120 MG, EVERY 3 MONTHS
     Route: 058
     Dates: start: 202104
  5. CARDIZEM CD [Concomitant]
     Active Substance: DILTIAZEM HYDROCHLORIDE
     Indication: Hypertension
     Dosage: 120 MG, QD
     Route: 048
     Dates: start: 20211102, end: 20211123
  6. MINERALS\VITAMINS [Concomitant]
     Active Substance: MINERALS\VITAMINS
     Indication: Nutritional supplementation
     Dosage: 1 TABLET, QD
     Route: 048
     Dates: start: 202101
  7. EMLA [Concomitant]
     Active Substance: LIDOCAINE\PRILOCAINE
     Indication: Anaesthesia
     Dosage: 1 APPLICATION, PRN PRIOR TO PORT-A-CATH ACCESS
     Route: 061
     Dates: start: 20210706
  8. TRAMADOL [Concomitant]
     Active Substance: TRAMADOL
     Indication: Bone pain
     Dosage: 50 MG, PRN Q8H
     Route: 048
     Dates: start: 20211026
  9. DURAGESIC [Concomitant]
     Active Substance: FENTANYL
     Indication: Bone pain
     Dosage: 25 UG, Q3 DAYS
     Route: 061
     Dates: start: 20211027
  10. NORCO [Concomitant]
     Active Substance: ACETAMINOPHEN\HYDROCODONE BITARTRATE
     Indication: Bone pain
     Dosage: 10 MG/325 MG, PRN Q4H
     Route: 048
     Dates: start: 20211027
  11. GABAPENTIN [Concomitant]
     Active Substance: GABAPENTIN
     Indication: Bone pain
     Dosage: 300 MG, QD
     Route: 048
     Dates: start: 20211027
  12. MIRALAX [Concomitant]
     Active Substance: POLYETHYLENE GLYCOL 3350
     Indication: Constipation
     Dosage: 17 G, PRN
     Route: 048
     Dates: start: 20211027
  13. DOCUSATE [Concomitant]
     Active Substance: DOCUSATE
     Indication: Constipation
     Dosage: 100 MG, PRN BID
     Route: 048
     Dates: start: 20211027
  14. HYDROXYZINE HYDROCHLORIDE [Concomitant]
     Active Substance: HYDROXYZINE HYDROCHLORIDE
     Indication: Pruritus
     Dosage: 25 MG, PRN Q8H
     Route: 048
     Dates: start: 20211122
  15. BENADRYL [Concomitant]
     Active Substance: DIPHENHYDRAMINE HYDROCHLORIDE
     Indication: Erythema multiforme
     Dosage: 25 MG, PRN Q6H
     Route: 048
     Dates: start: 20211116
  16. TRIAMCINOLONE [Concomitant]
     Active Substance: TRIAMCINOLONE
     Indication: Erythema multiforme
     Dosage: 1 APPLICATION (0.5% CREAM), TID
     Route: 061
     Dates: start: 20211116, end: 20211123
  17. TRIAMCINOLONE [Concomitant]
     Active Substance: TRIAMCINOLONE
     Dosage: 1 APPLICATION (0.1% CREAM), BID
     Route: 061
     Dates: start: 20211123
  18. DESONIDE [Concomitant]
     Active Substance: DESONIDE
     Indication: Erythema multiforme
     Dosage: 1 DOSAGE FORM, BID
     Route: 061
     Dates: start: 20211122
  19. ONDANSETRON [Concomitant]
     Active Substance: ONDANSETRON
     Indication: Prophylaxis of nausea and vomiting
     Dosage: 8 MG, PRIOR TO DOSING ON D1 AND D8
     Route: 042
     Dates: start: 20211102
  20. ONDANSETRON [Concomitant]
     Active Substance: ONDANSETRON
     Dosage: 8 MG, Q8H
     Route: 048
     Dates: start: 20211103
  21. DEXAMETHASONE [Concomitant]
     Active Substance: DEXAMETHASONE
     Indication: Prophylaxis of nausea and vomiting
     Dosage: 10 MG, PRIOR TO DOSING ON D1 AND D8
     Route: 042
     Dates: start: 20211102
  22. DEXAMETHASONE [Concomitant]
     Active Substance: DEXAMETHASONE
     Dosage: 4 MG, PRIOR TO SELINEXOR ON D15
     Route: 048
  23. OLANZAPINE [Concomitant]
     Active Substance: OLANZAPINE
     Indication: Prophylaxis of nausea and vomiting
     Dosage: 2.5 MG, QD
     Route: 048
     Dates: start: 20211103, end: 20211123

REACTIONS (1)
  - Platelet count decreased [Not Recovered/Not Resolved]

NARRATIVE: CASE EVENT DATE: 20211221
